FAERS Safety Report 6112979-0 (Version None)
Quarter: 2009Q1

REPORT INFORMATION
  Report Type: 
  Country: None (occurrence: None)
  Receive Date: 20090312
  Receipt Date: 20090305
  Transmission Date: 20090719
  Serious: Yes (Hospitalization, Congenital Anomaly)
  Sender: FDA-Public Use
  Company Number: A0680335A

PATIENT
  Sex: Female
  Weight: 3.5 kg

DRUGS (6)
  1. PAXIL [Suspect]
     Indication: DEPRESSION
     Dosage: 20MG PER DAY
     Dates: start: 19990113, end: 19990101
  2. VITAMIN TAB [Concomitant]
  3. KEFLEX [Concomitant]
     Dates: start: 19990201
  4. ALBUTEROL [Concomitant]
  5. ANTIBIOTICS [Concomitant]
  6. AMPICILLIN [Concomitant]

REACTIONS (4)
  - ATRIAL SEPTAL DEFECT [None]
  - DRUG EXPOSURE DURING PREGNANCY [None]
  - MULTIPLE CONGENITAL ABNORMALITIES [None]
  - PATENT DUCTUS ARTERIOSUS [None]
